FAERS Safety Report 23720971 (Version 1)
Quarter: 2024Q2

REPORT INFORMATION
  Report Type: Spontaneous
  Country: FR (occurrence: FR)
  Receive Date: 20240409
  Receipt Date: 20240409
  Transmission Date: 20240716
  Serious: Yes (Death, Other)
  Sender: FDA-Public Use
  Company Number: FR-AMGEN-FRASP2024068334

PATIENT

DRUGS (1)
  1. PROLIA [Suspect]
     Active Substance: DENOSUMAB
     Indication: Osteoporosis postmenopausal
     Dosage: UNK
     Route: 065

REACTIONS (19)
  - Death [Fatal]
  - Pathological fracture [Unknown]
  - Osteoporotic fracture [Unknown]
  - Hip fracture [Unknown]
  - Pelvic fracture [Unknown]
  - Sternal fracture [Unknown]
  - Femur fracture [Unknown]
  - Spinal fracture [Unknown]
  - Wrist fracture [Unknown]
  - Humerus fracture [Unknown]
  - Ankle fracture [Unknown]
  - Forearm fracture [Unknown]
  - Upper limb fracture [Unknown]
  - Rib fracture [Unknown]
  - Patella fracture [Unknown]
  - Foot fracture [Unknown]
  - Hand fracture [Unknown]
  - Clavicle fracture [Unknown]
  - Fracture [Unknown]
